FAERS Safety Report 8354084 (Version 8)
Quarter: 2013Q4

REPORT INFORMATION
  Report Type: Report from Study
  Country: DE (occurrence: DE)
  Receive Date: 20120111
  Receipt Date: 20131108
  Transmission Date: 20140711
  Serious: Yes (Death, Hospitalization, Other)
  Sender: FDA-Public Use
  Company Number: DE-009507513-2012SP000153

PATIENT
  Age: 47 Year
  Sex: Male
  Weight: 70 kg

DRUGS (9)
  1. RIBAVIRIN [Suspect]
     Indication: CHRONIC HEPATITIS C
     Dosage: 1000 MG, QD
     Route: 048
     Dates: start: 20110318, end: 20111231
  2. RIBAVIRIN [Suspect]
     Dosage: 1000 MG, QD
     Route: 048
     Dates: start: 20120103, end: 20120217
  3. PEGINTERFERON ALFA-2B [Suspect]
     Indication: CHRONIC HEPATITIS C
     Dosage: 105 MICROGRAM, QW
     Route: 058
     Dates: start: 20110318, end: 20120217
  4. FERROUS GLYCINE SULFATE [Suspect]
     Indication: IRON DEFICIENCY
     Dosage: 100 MG, QD
     Route: 048
     Dates: start: 201011
  5. PANTOPRAZOLE [Concomitant]
     Indication: PROPHYLAXIS
     Dosage: 40 MG, BID
     Dates: start: 201011
  6. CLEXANE (ENOXAPARIN SODIUM) [Concomitant]
     Indication: PORTAL VEIN THROMBOSIS
     Dosage: 0.4 ML, QD
     Dates: start: 201201
  7. DIPYRONE [Concomitant]
     Indication: PAIN
     Dosage: DROPS; INDICATION: PAIN/FEVER
     Dates: start: 20120208
  8. HUMATIN [Concomitant]
     Indication: HEPATIC ENCEPHALOPATHY
     Dosage: 1 G, TID
     Dates: start: 201207, end: 20120712
  9. HEPA-MERZ [Concomitant]
     Indication: HEPATIC ENCEPHALOPATHY
     Dosage: 6 G, TID
     Dates: start: 201207, end: 20120712

REACTIONS (8)
  - Mallory-Weiss syndrome [Recovered/Resolved]
  - Portal vein thrombosis [Recovered/Resolved]
  - Bile duct stone [Unknown]
  - Cholecystitis [Recovered/Resolved]
  - Hepatic cancer [Fatal]
  - Bile duct stent insertion [Unknown]
  - Peritonitis bacterial [Recovered/Resolved]
  - Hepatic cirrhosis [Fatal]
